FAERS Safety Report 20279242 (Version 2)
Quarter: 2022Q1

REPORT INFORMATION
  Report Type: Spontaneous
  Country: SA (occurrence: SA)
  Receive Date: 20220103
  Receipt Date: 20220203
  Transmission Date: 20220423
  Serious: Yes (Death, Life-Threatening, Hospitalization, Other)
  Sender: FDA-Public Use
  Company Number: SA-SA-SAC20211215001303

PATIENT
  Age: 87 Year
  Sex: Male

DRUGS (1)
  1. GLYBURIDE\METFORMIN [Suspect]
     Active Substance: GLYBURIDE\METFORMIN
     Dosage: 5MG
     Route: 048

REACTIONS (4)
  - Death [Fatal]
  - Hospitalisation [Unknown]
  - Gastrointestinal disorder [Fatal]
  - Hepatic cancer [Fatal]

NARRATIVE: CASE EVENT DATE: 20211215
